FAERS Safety Report 9693970 (Version 1)
Quarter: 2013Q4

REPORT INFORMATION
  Report Type: Spontaneous
  Country: US (occurrence: None)
  Receive Date: 20131114
  Receipt Date: 20131114
  Transmission Date: 20140711
  Serious: Yes (Hospitalization)
  Sender: FDA-Public Use
  Company Number: INT_00333_2013

PATIENT
  Age: 77 Year
  Sex: 0

DRUGS (11)
  1. MEROPENEM [Suspect]
     Indication: LOWER RESPIRATORY TRACT INFECTION
     Route: 041
     Dates: start: 20110422, end: 20110429
  2. AMOXICILLIN (AMOXICILLIN) [Suspect]
     Indication: PRODUCT USED FOR UNKNOWN INDICATION
     Route: 048
     Dates: start: 20100329, end: 20100405
  3. CIPROFLOXACIN [Suspect]
     Indication: PSEUDOMONAS INFECTION
     Route: 048
     Dates: start: 20110414, end: 20110430
  4. CLARITHROMYCIN (CLARITHROMYCIN) [Suspect]
     Indication: LOWER RESPIRATORY TRACT INFECTION
     Route: 048
     Dates: start: 20110414, end: 20110414
  5. CLARITHROMYCIN (CLARITHROMYCIN) [Suspect]
     Indication: PNEUMONIA ASPIRATION
     Route: 048
     Dates: start: 20110414, end: 20110414
  6. CLARITHROMYCIN (CLARITHROMYCIN) [Suspect]
     Indication: LOWER RESPIRATORY TRACT INFECTION
     Dosage: 500 MG,  [FREQUENCY UNKNOWN]INTRAVENOUS (NOT OTHERWISE SPECIFIED)
     Route: 042
     Dates: start: 20110414, end: 20110414
  7. LEVOFLOXACIN (LEVOFLOXACIN) [Suspect]
     Indication: PNEUMONIA ASPIRATION
     Route: 041
     Dates: start: 20110414, end: 20110414
  8. PIPERACILLIN/TAZOBACTAM [Suspect]
     Indication: RESPIRATORY FAILURE
     Route: 041
     Dates: start: 20110414, end: 20110422
  9. AUGMENTIN [Suspect]
     Indication: RESPIRATORY FAILURE
     Route: 042
     Dates: start: 20110413, end: 20110413
  10. PIP/TAZA [Suspect]
     Dosage: (UNKNOWN DF) (1 WEEK 1DAY)
     Dates: start: 20110413, end: 20110413
  11. TEICOPLANIN [Suspect]
     Indication: STAPHYLOCOCCAL INFECTION
     Dosage: (UNKNOWN DF)
     Dates: start: 20110422, end: 20110422

REACTIONS (8)
  - Faeces pale [None]
  - Diarrhoea [None]
  - Pyrexia [None]
  - C-reactive protein increased [None]
  - White blood cell count increased [None]
  - Lung consolidation [None]
  - Clostridium test positive [None]
  - Pseudomonas infection [None]
